FAERS Safety Report 19371664 (Version 1)
Quarter: 2021Q2

REPORT INFORMATION
  Report Type: Other
  Country: US (occurrence: US)
  Receive Date: 20210604
  Receipt Date: 20210604
  Transmission Date: 20210717
  Serious: Yes (Hospitalization, Other)
  Sender: FDA-Public Use
  Company Number: US-ROCHE-2837443

PATIENT
  Sex: Female
  Weight: 70.82 kg

DRUGS (11)
  1. NEULASTA [Suspect]
     Active Substance: PEGFILGRASTIM
     Indication: PRODUCT USED FOR UNKNOWN INDICATION
     Route: 065
     Dates: start: 202011
  2. XARELTO [Concomitant]
     Active Substance: RIVAROXABAN
     Dosage: STOPPED WITHIN THE LAST COUPLE OF WEEKS
     Route: 048
     Dates: start: 202105, end: 202105
  3. PREDNISONE. [Concomitant]
     Active Substance: PREDNISONE
     Indication: THROMBOSIS
     Route: 048
     Dates: start: 202105
  4. PANTOPRAZOLE [Concomitant]
     Active Substance: PANTOPRAZOLE
     Route: 048
     Dates: start: 202105
  5. OCREVUS [Suspect]
     Active Substance: OCRELIZUMAB
     Dosage: STARTED MAYBE 3 TO 4 YEARS AGO (PRESCRIBED WITH 300 MG, DAY 1 AND 15)?DATE OF TREATMENT:  11/FEB/201
     Route: 042
     Dates: start: 20190128, end: 202008
  6. XARELTO [Concomitant]
     Active Substance: RIVAROXABAN
     Indication: THROMBOSIS
     Route: 048
     Dates: start: 202105
  7. FLUCONAZOLE. [Concomitant]
     Active Substance: FLUCONAZOLE
     Dosage: TAKES ON MONDAY, WEDNESDAY AND FRIDAY
     Route: 048
     Dates: start: 202105
  8. PERJETA [Suspect]
     Active Substance: PERTUZUMAB
     Indication: HER2 POSITIVE BREAST CANCER
     Dosage: UNKNOWN START DATE ONLY HAD 2 OR 3 DOSES
     Route: 042
     Dates: start: 202011
  9. AMPYRA [Concomitant]
     Active Substance: DALFAMPRIDINE
     Dosage: UNKNOWN START AND STOP DATES
     Route: 048
  10. HERCEPTIN [Suspect]
     Active Substance: TRASTUZUMAB
     Indication: HER2 POSITIVE BREAST CANCER
     Route: 041
     Dates: start: 202011
  11. OCREVUS [Suspect]
     Active Substance: OCRELIZUMAB
     Indication: PRIMARY PROGRESSIVE MULTIPLE SCLEROSIS
     Dosage: STARTED MAYBE 3 TO 4 YEARS AGO?DATE OF TREATMENT:   07/FEB/2020
     Route: 042
     Dates: start: 20190725, end: 20200817

REACTIONS (10)
  - Weight decreased [Recovering/Resolving]
  - Pain [Recovering/Resolving]
  - Anaemia [Unknown]
  - HER2 positive breast cancer [Not Recovered/Not Resolved]
  - Dysphagia [Recovered/Resolved]
  - Cognitive disorder [Not Recovered/Not Resolved]
  - COVID-19 [Recovered/Resolved]
  - Pyrexia [Recovered/Resolved]
  - Thrombosis [Not Recovered/Not Resolved]
  - Muscular weakness [Recovering/Resolving]

NARRATIVE: CASE EVENT DATE: 2020
